FAERS Safety Report 15988649 (Version 1)
Quarter: 2019Q1

REPORT INFORMATION
  Report Type: Spontaneous
  Country: GB (occurrence: GB)
  Receive Date: 20190221
  Receipt Date: 20190221
  Transmission Date: 20190418
  Serious: Yes (Life-Threatening)
  Sender: FDA-Public Use
  Company Number: GB-B.I. PHARMACEUTICALS,INC./RIDGEFIELD-2019-12-000630

PATIENT
  Sex: Female

DRUGS (9)
  1. ATROVENT [Suspect]
     Active Substance: IPRATROPIUM BROMIDE
     Indication: LANGERHANS^ CELL HISTIOCYTOSIS
  2. MAGNESIUM SULPHATE [Suspect]
     Active Substance: MAGNESIUM SULFATE
     Indication: ASTHMA
  3. ATROVENT [Suspect]
     Active Substance: IPRATROPIUM BROMIDE
     Indication: ASTHMA
     Route: 065
  4. AMINOPHYLLINE. [Suspect]
     Active Substance: AMINOPHYLLINE
     Indication: ASTHMA
  5. SALBUTAMOL [Suspect]
     Active Substance: ALBUTEROL
     Indication: ASTHMA
     Route: 065
  6. EPINEPHRINE. [Concomitant]
     Active Substance: EPINEPHRINE
     Indication: BRONCHOSPASM
     Dosage: FORM: INFUSION
     Route: 042
  7. SALBUTAMOL [Suspect]
     Active Substance: ALBUTEROL
     Indication: LANGERHANS^ CELL HISTIOCYTOSIS
     Route: 042
  8. AMINOPHYLLINE. [Suspect]
     Active Substance: AMINOPHYLLINE
     Indication: LANGERHANS^ CELL HISTIOCYTOSIS
     Dosage: FORM: INFUSION
     Route: 065
  9. MAGNESIUM SULPHATE [Suspect]
     Active Substance: MAGNESIUM SULFATE
     Indication: LANGERHANS^ CELL HISTIOCYTOSIS
     Route: 065

REACTIONS (3)
  - Condition aggravated [Unknown]
  - Respiratory acidosis [Unknown]
  - Drug ineffective [Unknown]
